FAERS Safety Report 23032585 (Version 2)
Quarter: 2024Q3

REPORT INFORMATION
  Report Type: Spontaneous
  Country: ES (occurrence: ES)
  Receive Date: 20231005
  Receipt Date: 20240712
  Transmission Date: 20241016
  Serious: Yes (Other)
  Sender: PFIZER
  Company Number: None

PATIENT
  Age: 30 Year
  Sex: Male

DRUGS (6)
  1. ADCETRIS [Suspect]
     Active Substance: BRENTUXIMAB VEDOTIN
     Indication: Non-Hodgkin^s lymphoma
     Dosage: 145.8 MG/ 162MG MAINTENANCE (1.8 MG/KG IV EVERY 3 WEEKS)
     Route: 042
     Dates: start: 20220530, end: 20230105
  2. ADCETRIS [Suspect]
     Active Substance: BRENTUXIMAB VEDOTIN
     Dosage: 145.8 MG/ 162MG MAINTENANCE (1.8 MG/KG IV EVERY 3 WEEKS)
     Route: 042
     Dates: start: 20230126
  3. DOXORUBICIN HYDROCHLORIDE [Suspect]
     Active Substance: DOXORUBICIN HYDROCHLORIDE
     Indication: Non-Hodgkin^s lymphoma
     Dosage: 97.5 MG, CYCLIC (50MG/M2)
     Route: 042
     Dates: start: 20220530, end: 20230105
  4. CYCLOPHOSPHAMIDE [Suspect]
     Active Substance: CYCLOPHOSPHAMIDE
     Indication: Non-Hodgkin^s lymphoma
     Dosage: 146.5 MG, CYCLIC (146.5 MG (750MG/M2))
     Route: 042
     Dates: start: 20220530, end: 20230105
  5. CYCLOPHOSPHAMIDE [Suspect]
     Active Substance: CYCLOPHOSPHAMIDE
     Indication: Non-Hodgkin^s lymphoma
     Dosage: 145.5 MG, CYCLIC (146.5 MG (750MG/M2))
     Route: 042
     Dates: start: 20220530, end: 20230105
  6. PREDNISONE [Concomitant]
     Active Substance: PREDNISONE
     Indication: Non-Hodgkin^s lymphoma
     Dosage: 100 MG, CYCLIC
     Route: 048
     Dates: start: 20220530, end: 20230105

REACTIONS (1)
  - Hepatic cytolysis [Recovered/Resolved]

NARRATIVE: CASE EVENT DATE: 20230103
